FAERS Safety Report 6368698-9 (Version None)
Quarter: 2009Q3

REPORT INFORMATION
  Report Type: 
  Country: None (occurrence: None)
  Receive Date: 20090917
  Receipt Date: 20090917
  Transmission Date: 20100115
  Serious: Yes (Other)
  Sender: FDA-Public Use
  Company Number: None

PATIENT
  Age: 45 Year
  Sex: Female
  Weight: 90.2658 kg

DRUGS (1)
  1. NEXIUM [Suspect]
     Indication: GASTROOESOPHAGEAL REFLUX DISEASE
     Dosage: 40 MG 1X DAILY PO
     Route: 048
     Dates: start: 20071217, end: 20090911

REACTIONS (12)
  - ACNE [None]
  - BACK PAIN [None]
  - FLUID RETENTION [None]
  - HYPERSENSITIVITY [None]
  - INFLUENZA LIKE ILLNESS [None]
  - JOINT SWELLING [None]
  - NO THERAPEUTIC RESPONSE [None]
  - OEDEMA PERIPHERAL [None]
  - SEASONAL ALLERGY [None]
  - SINUS DISORDER [None]
  - SKIN ULCER [None]
  - WEIGHT INCREASED [None]
